FAERS Safety Report 6381015-3 (Version None)
Quarter: 2009Q3

REPORT INFORMATION
  Report Type: 
  Country: None (occurrence: None)
  Receive Date: 20090929
  Receipt Date: 20090919
  Transmission Date: 20100115
  Serious: Yes (Death)
  Sender: FDA-Public Use
  Company Number: JP-WYE-H10964309

PATIENT
  Sex: Male
  Weight: 63 kg

DRUGS (10)
  1. ZOSYN [Suspect]
     Indication: PNEUMONIA ASPIRATION
     Route: 042
     Dates: start: 20090818, end: 20090829
  2. GASMOTIN [Suspect]
     Indication: GASTROINTESTINAL MOTILITY DISORDER
     Dosage: UNKNOWN
     Route: 048
     Dates: start: 20090817, end: 20090821
  3. DAI-KENCHU-TO [Suspect]
     Indication: GASTROINTESTINAL MOTILITY DISORDER
     Dosage: UNKNOWN
     Route: 048
     Dates: start: 20090817, end: 20090821
  4. VITAMINS NOS [Concomitant]
     Dosage: UNKNOWN
     Route: 042
     Dates: end: 20090901
  5. INSULIN HUMAN [Concomitant]
     Dosage: 16 UNIT EVERY 1 DAY
     Route: 042
     Dates: end: 20090911
  6. LASIX [Concomitant]
     Route: 042
     Dates: end: 20090911
  7. AMINO ACIDS NOS [Concomitant]
     Dosage: UNKNOWN
     Route: 042
     Dates: end: 20090901
  8. ELECTROLYTE SOLUTIONS [Concomitant]
     Dosage: UNKNOWN
     Route: 042
     Dates: end: 20090901
  9. PRIMPERAN [Suspect]
     Indication: GASTROINTESTINAL MOTILITY DISORDER
     Dosage: UNKNOWN
     Dates: start: 20090814, end: 20090821
  10. FESIN [Concomitant]
     Route: 042
     Dates: start: 20090725, end: 20090821

REACTIONS (1)
  - INTERSTITIAL LUNG DISEASE [None]
